FAERS Safety Report 5810274-8 (Version None)
Quarter: 2008Q3

REPORT INFORMATION
  Report Type: 
  Country: None (occurrence: None)
  Receive Date: 20080709
  Receipt Date: 20080626
  Transmission Date: 20090109
  Serious: Yes (Hospitalization)
  Sender: FDA-Public Use
  Company Number: FABR-1000312

PATIENT
  Age: 51 Year
  Sex: Male
  Weight: 81.8 kg

DRUGS (5)
  1. FABRAZYME [Suspect]
     Indication: FABRY'S DISEASE
     Dosage: 80 MG, Q2W
     Dates: start: 20020507
  2. COZAAR [Concomitant]
  3. PREDNISOLONE ACETATE [Concomitant]
  4. ASPIRIN [Concomitant]
  5. LIPITOR [Concomitant]

REACTIONS (6)
  - AORTIC DISORDER [None]
  - AORTIC VALVE DISEASE [None]
  - ATRIAL FLUTTER [None]
  - PNEUMOTHORAX [None]
  - PROCEDURAL NAUSEA [None]
  - SUBCUTANEOUS EMPHYSEMA [None]
